FAERS Safety Report 5457451-6 (Version None)
Quarter: 2007Q3

REPORT INFORMATION
  Report Type: 
  Country: None (occurrence: None)
  Receive Date: 20070918
  Receipt Date: 20070307
  Transmission Date: 20080115
  Serious: No
  Sender: FDA-Public Use
  Company Number: US-ASTRAZENECA-2007UW04279

PATIENT
  Age: 39 Year
  Sex: Male

DRUGS (8)
  1. SEROQUEL [Suspect]
     Indication: BIPOLAR DISORDER
     Route: 048
     Dates: start: 20060601, end: 20070201
  2. SEROQUEL [Suspect]
     Indication: PSYCHOTIC DISORDER
     Route: 048
     Dates: start: 20060601, end: 20070201
  3. SEROQUEL [Suspect]
     Route: 048
     Dates: start: 20060601, end: 20070201
  4. SEROQUEL [Suspect]
     Route: 048
     Dates: start: 20060601, end: 20070201
  5. NEXIUM [Concomitant]
     Route: 048
  6. WELLBUTRIN [Concomitant]
  7. SYNTHROID [Concomitant]
     Dates: start: 20060101
  8. TESTOSTERONE [Concomitant]

REACTIONS (4)
  - FEELING ABNORMAL [None]
  - INSOMNIA [None]
  - POLYDIPSIA [None]
  - SOMNOLENCE [None]
